FAERS Safety Report 8177412-6 (Version None)
Quarter: 2012Q1

REPORT INFORMATION
  Report Type: 
  Country: None (occurrence: None)
  Receive Date: 20120301
  Receipt Date: 20120224
  Transmission Date: 20120608
  Serious: Yes (Other)
  Sender: FDA-Public Use
  Company Number: US-PFIZER INC-2012038341

PATIENT
  Sex: Male

DRUGS (2)
  1. ATACAND [Concomitant]
     Indication: HYPERTENSION
     Dosage: UNK
  2. NORVASC [Suspect]
     Indication: HYPERTENSION
     Dosage: UNK
     Route: 048

REACTIONS (1)
  - CONGENITAL CYSTIC KIDNEY DISEASE [None]
